FAERS Safety Report 8353773-X (Version None)
Quarter: 2012Q2

REPORT INFORMATION
  Report Type: 
  Country: None (occurrence: None)
  Receive Date: 20120511
  Receipt Date: 20111102
  Transmission Date: 20120825
  Serious: No
  Sender: FDA-Public Use
  Company Number: US-GLAXOSMITHKLINE-A0951768A

PATIENT
  Sex: Female
  Weight: 98.6 kg

DRUGS (3)
  1. TYKERB [Suspect]
     Indication: BREAST CANCER METASTATIC
     Dosage: 2500MG PER DAY
     Route: 048
     Dates: start: 20110501, end: 20110501
  2. TYKERB [Suspect]
     Dosage: 1250MG PER DAY
     Route: 048
     Dates: start: 20110501
  3. XELODA [Suspect]
     Indication: PRODUCT USED FOR UNKNOWN INDICATION
     Route: 065

REACTIONS (9)
  - PALMAR ERYTHEMA [None]
  - PAIN IN EXTREMITY [None]
  - OVERDOSE [None]
  - OEDEMA PERIPHERAL [None]
  - BURNING SENSATION [None]
  - ERYTHEMA [None]
  - NAIL INFECTION [None]
  - SKIN IRRITATION [None]
  - ONYCHOMADESIS [None]
